FAERS Safety Report 7776169-8 (Version None)
Quarter: 2011Q3

REPORT INFORMATION
  Report Type: 
  Country: None (occurrence: None)
  Receive Date: 20110926
  Receipt Date: 20110920
  Transmission Date: 20111222
  Serious: Yes (Hospitalization, Other)
  Sender: FDA-Public Use
  Company Number: US-BRISTOL-MYERS SQUIBB COMPANY-15994387

PATIENT
  Age: 60 Year
  Sex: Male
  Weight: 97 kg

DRUGS (16)
  1. ZOVIRAX [Concomitant]
  2. CETUXIMAB [Suspect]
     Indication: SQUAMOUS CELL CARCINOMA
     Dosage: NO OF DOSE:4
     Dates: start: 20110726
  3. ASPIRIN [Concomitant]
  4. LIDOCAINE [Concomitant]
     Dosage: 10CC OF 1% BUFFERED LIDOCAINE SOLUTION
  5. NEURONTIN [Concomitant]
  6. VITAMIN B COMPLEX CAP [Concomitant]
  7. SIMVASTATIN [Concomitant]
  8. METOCLOPRAMIDE [Concomitant]
  9. CISPLATIN [Suspect]
     Indication: SQUAMOUS CELL CARCINOMA
     Dates: start: 20110726
  10. CARAFATE [Concomitant]
  11. OXYCONTIN [Concomitant]
  12. OXYCODONE [Concomitant]
     Dosage: Q4-6HR.
  13. LISINOPRIL [Concomitant]
  14. FLUTICASONE PROPIONATE [Concomitant]
  15. DASATINIB [Suspect]
     Indication: SQUAMOUS CELL CARCINOMA
     Dosage: DASTANIB 20+50MGS,EXPIRY DATE:31OCT2011,NDC:0003-0527-11
     Route: 048
     Dates: start: 20110726
  16. AMLODIPINE [Concomitant]

REACTIONS (4)
  - HAEMATEMESIS [None]
  - PYREXIA [None]
  - SWELLING [None]
  - ABSCESS [None]
